FAERS Safety Report 7521454-8 (Version None)
Quarter: 2011Q2

REPORT INFORMATION
  Report Type: 
  Country: None (occurrence: None)
  Receive Date: 20110603
  Receipt Date: 20110317
  Transmission Date: 20111010
  Serious: Yes (Hospitalization, Other)
  Sender: FDA-Public Use
  Company Number: PL-BAYER-2010-000298

PATIENT
  Age: 26 Year
  Sex: Female

DRUGS (1)
  1. EXTAVIA [Suspect]
     Indication: MULTIPLE SCLEROSIS
     Dosage: 250 ?G, QOD
     Route: 058
     Dates: start: 20080807

REACTIONS (9)
  - ABDOMINAL ABSCESS [None]
  - INJECTION SITE PAIN [None]
  - PROTEINURIA [None]
  - MALAISE [None]
  - ABSCESS DRAINAGE [None]
  - URINE KETONE BODY PRESENT [None]
  - APPENDICITIS [None]
  - PYREXIA [None]
  - ERYTHEMA [None]
